FAERS Safety Report 8488638-6 (Version None)
Quarter: 2012Q2

REPORT INFORMATION
  Report Type: 
  Country: None (occurrence: None)
  Receive Date: 20120626
  Receipt Date: 20120612
  Transmission Date: 20120825
  Serious: Yes (Other)
  Sender: FDA-Public Use
  Company Number: DSM-2012-00664

PATIENT

DRUGS (3)
  1. ATENOLOL [Suspect]
     Indication: HYPERTENSION
     Dosage: 100 MG, ORAL
     Route: 048
     Dates: start: 20120101
  2. OLMESARTAN MEDOXOMIL AND HYDROCHLOROTHIZIDE [Suspect]
     Indication: HYPERTENSION
     Dosage: 20/25 MG, ORAL
     Route: 048
     Dates: start: 20120101
  3. CARDIRENE (ACETYLSALICYLATE LYSINE) (ACETYLSALICYLATE LYSINE) [Suspect]
     Indication: THROMBOSIS PROPHYLAXIS
     Dosage: 75 MG, ORAL
     Route: 048
     Dates: start: 20120101

REACTIONS (2)
  - LIP OEDEMA [None]
  - PARAESTHESIA ORAL [None]
